FAERS Safety Report 4503781-1 (Version None)
Quarter: 2004Q4

REPORT INFORMATION
  Report Type: 
  Country: None (occurrence: None)
  Receive Date: 20041115
  Receipt Date: 20041028
  Transmission Date: 20050328
  Serious: Yes (Death, Hospitalization)
  Sender: FDA-Public Use
  Company Number: PANC00399001310

PATIENT
  Age: 8 Year
  Sex: Male

DRUGS (6)
  1. CREON [Suspect]
     Indication: CYSTIC FIBROSIS
     Dosage: 1 GRAM(S) TID ORAL
     Route: 048
     Dates: start: 19961111
  2. MUCODYNE (CARBOCISTEINE) [Concomitant]
  3. ENTERONON-R (LACTOBACILLUS ACIDOPHILUS) [Concomitant]
  4. HYMERON K1 (PHYTOMENADIONE) [Concomitant]
  5. ALFAROL (ALFACALCIDOL) [Concomitant]
  6. JUVELA (TOCOPHEROL) [Concomitant]

REACTIONS (38)
  - ABDOMINAL PAIN [None]
  - AMMONIA INCREASED [None]
  - ANAEMIA [None]
  - ASCITES [None]
  - ATELECTASIS [None]
  - BACK PAIN [None]
  - BLOOD ALBUMIN DECREASED [None]
  - BLOOD PH DECREASED [None]
  - BLOOD PRESSURE DECREASED [None]
  - BRONCHIECTASIS [None]
  - COAGULOPATHY [None]
  - DRUG INEFFECTIVE [None]
  - GALLBLADDER DISORDER [None]
  - GASTRITIS HAEMORRHAGIC [None]
  - GASTROINTESTINAL ULCER [None]
  - HAEMATEMESIS [None]
  - HEART RATE DECREASED [None]
  - HEPATIC CIRRHOSIS [None]
  - HEPATIC ENCEPHALOPATHY [None]
  - HEPATIC FAILURE [None]
  - HORSESHOE KIDNEY [None]
  - HUNGER [None]
  - HYPERCAPNIA [None]
  - LARGE INTESTINAL ULCER HAEMORRHAGE [None]
  - PAIN [None]
  - PALLOR [None]
  - PANCREATITIS CHRONIC [None]
  - PANCYTOPENIA [None]
  - PERITONITIS [None]
  - PNEUMONIA [None]
  - PORTAL HYPERTENSION [None]
  - RESPIRATORY FAILURE [None]
  - SMALL INTESTINAL HAEMORRHAGE [None]
  - SPLENOMEGALY [None]
  - SPUTUM RETENTION [None]
  - THIRST [None]
  - URINE OUTPUT DECREASED [None]
  - VARICES OESOPHAGEAL [None]
